FAERS Safety Report 14890018 (Version 2)
Quarter: 2018Q2

REPORT INFORMATION
  Report Type: Spontaneous
  Country: FR (occurrence: DE)
  Receive Date: 20180514
  Receipt Date: 20180529
  Transmission Date: 20180711
  Serious: Yes (Other)
  Sender: FDA-Public Use
  Company Number: DE-MERCK KGAA-2047683

PATIENT

DRUGS (3)
  1. NOVOTHYROX [Suspect]
     Active Substance: LEVOTHYROXINE SODIUM
     Indication: PRODUCT USED FOR UNKNOWN INDICATION
  2. EUTHYROX [Suspect]
     Active Substance: LEVOTHYROXINE SODIUM
  3. EUTHYROX [Suspect]
     Active Substance: LEVOTHYROXINE SODIUM

REACTIONS (12)
  - Arrhythmia [None]
  - Blood glucose decreased [None]
  - Mean cell haemoglobin concentration decreased [None]
  - Malaise [None]
  - Laboratory test abnormal [None]
  - Hyperthyroidism [None]
  - Blood thyroid stimulating hormone decreased [None]
  - Somnolence [None]
  - Mean cell haemoglobin decreased [None]
  - Loss of consciousness [None]
  - Blood potassium increased [Recovered/Resolved]
  - Thyroxine free increased [Recovered/Resolved]

NARRATIVE: CASE EVENT DATE: 20180128
